FAERS Safety Report 4978247-5 (Version None)
Quarter: 2006Q2

REPORT INFORMATION
  Report Type: 
  Country: None (occurrence: None)
  Receive Date: 20060420
  Receipt Date: 20060410
  Transmission Date: 20061013
  Serious: Yes (Hospitalization)
  Sender: FDA-Public Use
  Company Number: DE-BRISTOL-MYERS SQUIBB COMPANY-13347612

PATIENT
  Age: 33 Year
  Sex: Male
  Weight: 70 kg

DRUGS (8)
  1. ENDOXAN [Suspect]
     Indication: HODGKIN'S DISEASE
     Route: 042
     Dates: start: 20051027, end: 20060213
  2. BLEOMYCIN [Suspect]
     Indication: HODGKIN'S DISEASE
     Dates: start: 20051027, end: 20060220
  3. ADRIAMYCIN PFS [Suspect]
     Indication: HODGKIN'S DISEASE
     Dates: start: 20051027, end: 20060215
  4. EXITOP [Suspect]
     Indication: HODGKIN'S DISEASE
     Route: 042
     Dates: start: 20051027, end: 20060215
  5. NATULAN [Suspect]
     Indication: HODGKIN'S DISEASE
     Dates: start: 20051027, end: 20060219
  6. PREDNISONE [Suspect]
     Indication: HODGKIN'S DISEASE
     Dates: start: 20051027, end: 20060219
  7. EPOGEN [Suspect]
     Indication: HODGKIN'S DISEASE
  8. PLACEBO [Suspect]
     Indication: HODGKIN'S DISEASE

REACTIONS (1)
  - PNEUMONIA PRIMARY ATYPICAL [None]
